FAERS Safety Report 4362248-4 (Version None)
Quarter: 2004Q2

REPORT INFORMATION
  Report Type: 
  Country: None (occurrence: None)
  Receive Date: 20040518
  Receipt Date: 20040504
  Transmission Date: 20050107
  Serious: Yes (Hospitalization, Other)
  Sender: FDA-Public Use
  Company Number: 200417627BWH

PATIENT
  Age: 49 Year
  Sex: Male
  Weight: 108.8633 kg

DRUGS (10)
  1. LEVITRA [Suspect]
     Indication: ERECTILE DYSFUNCTION
     Dosage: 20 MG, ONCE, ORAL
     Route: 048
     Dates: start: 20040404
  2. AVALIDE [Concomitant]
  3. DEPAKOTE [Concomitant]
  4. FOLIC ACID [Concomitant]
  5. CHLORAZEPAM [Concomitant]
  6. SULFASALAZINE [Concomitant]
  7. ATIVAN [Concomitant]
  8. ADALAT [Concomitant]
  9. SULFASOL [Concomitant]
  10. TRAZODONE HCL [Concomitant]

REACTIONS (16)
  - ATROPHY [None]
  - BALANCE DISORDER [None]
  - CAROTID ARTERY OCCLUSION [None]
  - CEREBROVASCULAR ACCIDENT [None]
  - CHEST DISCOMFORT [None]
  - CHEST PAIN [None]
  - DIZZINESS [None]
  - DYSARTHRIA [None]
  - FACIAL PALSY [None]
  - GAIT DISTURBANCE [None]
  - NAUSEA [None]
  - SENSORY DISTURBANCE [None]
  - SOMNOLENCE [None]
  - SPEECH DISORDER [None]
  - TRANSIENT ISCHAEMIC ATTACK [None]
  - VERTIGO [None]
